FAERS Safety Report 9238360 (Version 2)
Quarter: 2013Q2

REPORT INFORMATION
  Report Type: Spontaneous
  Country: NL (occurrence: None)
  Receive Date: 20130416
  Receipt Date: 20130416
  Transmission Date: 20140414
  Serious: Yes (Hospitalization)
  Sender: FDA-Public Use
  Company Number: 2013-1553

PATIENT
  Age: 55 Year
  Sex: Female

DRUGS (1)
  1. SOMATULINE [Suspect]
     Indication: ACROMEGALY
     Dosage: (1 IN 28 D)
     Route: 058
     Dates: start: 20101123

REACTIONS (3)
  - Chest pain [None]
  - Cardiomegaly [None]
  - Heart rate decreased [None]
